FAERS Safety Report 18955052 (Version 1)
Quarter: 2021Q1

REPORT INFORMATION
  Report Type: Spontaneous
  Country: GB (occurrence: GB)
  Receive Date: 20210301
  Receipt Date: 20210301
  Transmission Date: 20210420
  Serious: Yes (Disabling, Other)
  Sender: FDA-Public Use
  Company Number: GB-TEVA-2021-GB-1882027

PATIENT
  Age: 69 Year
  Sex: Female
  Weight: 80 kg

DRUGS (1)
  1. DOXYCYCLINE. [Suspect]
     Active Substance: DOXYCYCLINE
     Indication: CELLULITIS
     Dosage: 2 CAPSULES DAY ONE THEN ONE CAPSULE DAILY
     Route: 048
     Dates: start: 20210205, end: 20210207

REACTIONS (3)
  - Rash [Recovered/Resolved with Sequelae]
  - Pruritus [Recovered/Resolved with Sequelae]
  - Pain of skin [Recovered/Resolved with Sequelae]

NARRATIVE: CASE EVENT DATE: 20210205
